FAERS Safety Report 25085819 (Version 2)
Quarter: 2025Q3

REPORT INFORMATION
  Report Type: Spontaneous
  Country: EU (occurrence: EU)
  Receive Date: 20250317
  Receipt Date: 20250912
  Transmission Date: 20251020
  Serious: Yes (Hospitalization, Other)
  Sender: DR REDDYS
  Company Number: None

PATIENT
  Sex: Male

DRUGS (28)
  1. PEMETREXED [Suspect]
     Active Substance: PEMETREXED
     Indication: Adenocarcinoma metastatic
  2. PEMETREXED [Suspect]
     Active Substance: PEMETREXED
     Indication: Lung adenocarcinoma
  3. TRIMETHOPRIM [Suspect]
     Active Substance: TRIMETHOPRIM
     Indication: Pulmonary nocardiosis
  4. MIRTAZAPINE [Suspect]
     Active Substance: MIRTAZAPINE
     Indication: Depression
     Dosage: 15 MG (0- 0- 1)
  5. LINEZOLID [Suspect]
     Active Substance: LINEZOLID
     Indication: Pulmonary nocardiosis
  6. LINEZOLID [Suspect]
     Active Substance: LINEZOLID
  7. LINEZOLID [Suspect]
     Active Substance: LINEZOLID
  8. SULFAMETHOXAZOLE\TRIMETHOPRIM [Suspect]
     Active Substance: SULFAMETHOXAZOLE\TRIMETHOPRIM
     Indication: Pulmonary nocardiosis
  9. SULFAMETHOXAZOLE\TRIMETHOPRIM [Suspect]
     Active Substance: SULFAMETHOXAZOLE\TRIMETHOPRIM
  10. CARBOPLATIN [Suspect]
     Active Substance: CARBOPLATIN
     Indication: Adenocarcinoma metastatic
  11. CARBOPLATIN [Suspect]
     Active Substance: CARBOPLATIN
     Indication: Lung adenocarcinoma
  12. PEMBROLIZUMAB [Suspect]
     Active Substance: PEMBROLIZUMAB
     Indication: Adenocarcinoma metastatic
  13. PEMBROLIZUMAB [Suspect]
     Active Substance: PEMBROLIZUMAB
     Indication: Lung adenocarcinoma
  14. VINORELBINE [Suspect]
     Active Substance: VINORELBINE TARTRATE
     Indication: Lung adenocarcinoma
  15. OMEPRAZOLE [Concomitant]
     Active Substance: OMEPRAZOLE
     Indication: Product used for unknown indication
     Dosage: 20 MG (1- 0- 0)
  16. POLYETHYLENE GLYCOLS [Concomitant]
     Active Substance: POLYETHYLENE GLYCOLS
     Indication: Constipation
  17. APIXABAN [Concomitant]
     Active Substance: APIXABAN
     Indication: Product used for unknown indication
     Dosage: 5 MG (1- 0- 1)
  18. ALPRAZOLAM [Concomitant]
     Active Substance: ALPRAZOLAM
     Indication: Depression
     Dosage: 0.5 MG (1- 0-1)
  19. TAMSULOSIN [Concomitant]
     Active Substance: TAMSULOSIN
     Indication: Benign prostatic hyperplasia
     Dosage: 0.4 MG (0- 0- 1)
  20. AMIKACIN [Concomitant]
     Active Substance: AMIKACIN
     Indication: Pulmonary nocardiosis
  21. AZITHROMYCIN [Concomitant]
     Active Substance: AZITHROMYCIN
     Indication: Evidence based treatment
  22. CEFDITOREN [Concomitant]
     Active Substance: CEFDITOREN
     Indication: Evidence based treatment
  23. CEFTRIAXONE [Concomitant]
     Active Substance: CEFTRIAXONE
     Indication: Pulmonary nocardiosis
  24. IMIPENEM [Concomitant]
     Active Substance: IMIPENEM
     Indication: Pulmonary nocardiosis
  25. IMIPENEM [Concomitant]
     Active Substance: IMIPENEM
  26. IMIPENEM [Concomitant]
     Active Substance: IMIPENEM
  27. IMIPENEM [Concomitant]
     Active Substance: IMIPENEM
  28. PACLITAXEL [Concomitant]
     Active Substance: PACLITAXEL
     Indication: Lung adenocarcinoma

REACTIONS (4)
  - Malignant neoplasm progression [Unknown]
  - Hepatotoxicity [Recovering/Resolving]
  - Drug interaction [Unknown]
  - Drug ineffective [Unknown]

NARRATIVE: CASE EVENT DATE: 20220801
